FAERS Safety Report 16186439 (Version 2)
Quarter: 2019Q4

REPORT INFORMATION
  Report Type: Report from Study
  Country: CA (occurrence: CA)
  Receive Date: 20190411
  Receipt Date: 20191204
  Transmission Date: 20200122
  Serious: Yes (Hospitalization)
  Sender: FDA-Public Use
  Company Number: CA-PFIZER INC-2019152060

PATIENT
  Age: 15 Year
  Sex: Male

DRUGS (45)
  1. CYTARABINE. [Suspect]
     Active Substance: CYTARABINE
     Indication: NEOPLASM MALIGNANT
     Dosage: 20 MG/M2, 1 IN 1D
     Route: 042
     Dates: start: 20180430, end: 20180509
  2. VENETOCLAX. [Suspect]
     Active Substance: VENETOCLAX
     Dosage: 600 MG,1 IN 1 D
     Route: 048
     Dates: start: 20180425, end: 20180504
  3. VENETOCLAX. [Suspect]
     Active Substance: VENETOCLAX
     Dosage: 800 MG, 1 IN 1 D
     Route: 048
     Dates: start: 20180628
  4. NYSTATIN. [Concomitant]
     Active Substance: NYSTATIN
     Dosage: SWAB IN MOUTH (40000 UNIT, 4 IN 1 D)
     Dates: start: 20170715
  5. CETIRIZINE [Concomitant]
     Active Substance: CETIRIZINE HYDROCHLORIDE
     Indication: PROPHYLAXIS
     Dosage: 5 MG, AS NEEDED
     Route: 048
     Dates: start: 20180326
  6. ZINC GLUCONATE [Concomitant]
     Active Substance: ZINC GLUCONATE
     Indication: IMPAIRED HEALING
     Dosage: 10 MG, 1 IN 1 D
     Route: 048
     Dates: start: 20180413
  7. CLONIDINE. [Concomitant]
     Active Substance: CLONIDINE
     Dosage: AT HS (0.05 MG, 1 IN 1 D)
     Route: 048
     Dates: start: 20180522, end: 20180613
  8. CEPACOL [BENZOCAINE] [Concomitant]
     Indication: OROPHARYNGEAL PAIN
     Dosage: 1 LOZENGE, Q4H PRN
     Route: 048
     Dates: start: 20171130
  9. TUMS [Concomitant]
     Active Substance: CALCIUM CARBONATE
     Indication: GASTROOESOPHAGEAL REFLUX DISEASE
     Dosage: 2 DROP, AS REQUIRED
     Route: 048
     Dates: start: 20171215
  10. VENETOCLAX. [Suspect]
     Active Substance: VENETOCLAX
     Dosage: 400MG,1 IN 1 D
     Route: 048
     Dates: start: 20180413, end: 20180424
  11. SERTRALINE [SERTRALINE HYDROCHLORIDE] [Concomitant]
     Indication: PROPHYLAXIS
     Dosage: 125, 100 MG (1 IN 1 D)
     Route: 048
     Dates: start: 20180426
  12. ALLOPURINOL. [Concomitant]
     Active Substance: ALLOPURINOL
     Indication: PROPHYLAXIS
     Dosage: UNK
     Route: 042
     Dates: start: 20171127, end: 20171202
  13. CLONIDINE. [Concomitant]
     Active Substance: CLONIDINE
     Indication: PAIN MANAGEMENT
     Dosage: 0.15 MG, 4 IN 1 D
     Route: 048
     Dates: start: 20180420, end: 20180429
  14. VENETOCLAX. [Suspect]
     Active Substance: VENETOCLAX
     Dosage: 500 MG,1 IN 1 D
     Route: 048
     Dates: start: 20180505, end: 20180510
  15. VENETOCLAX. [Suspect]
     Active Substance: VENETOCLAX
     Dosage: 600 MG, 1 IN 1 D
     Route: 048
     Dates: start: 20180511, end: 20180615
  16. AZACITIDINE. [Suspect]
     Active Substance: AZACITIDINE
     Indication: NEOPLASM MALIGNANT
     Dosage: 75 MG/M2, 1 IN 1 D
     Route: 058
     Dates: start: 20180104, end: 20180108
  17. AZACITIDINE. [Suspect]
     Active Substance: AZACITIDINE
     Dosage: 75 MG/M2, 1 IN 1 D
     Route: 058
     Dates: start: 20180222, end: 20180226
  18. GRANISETRON [Concomitant]
     Active Substance: GRANISETRON
     Indication: PROPHYLAXIS
     Dosage: 1 MG, 1 IN 1 DAY
     Route: 048
     Dates: start: 20180106
  19. GRANISETRON [Concomitant]
     Active Substance: GRANISETRON
     Indication: PROPHYLAXIS
  20. ACETAMINOPHENE [Concomitant]
     Active Substance: ACETAMINOPHEN
     Indication: PAIN
  21. SELENIUM [Concomitant]
     Active Substance: SELENIUM
     Indication: IMPAIRED HEALING
     Dosage: 50 MCG, 1 IN 1 D
     Route: 048
     Dates: start: 20180405
  22. DEXTROSE 5% + NACL0.9% [Concomitant]
     Dosage: UNK
     Route: 042
     Dates: start: 20180104, end: 20180106
  23. CLONIDINE. [Concomitant]
     Active Substance: CLONIDINE
     Indication: HYPERTENSION
     Dosage: 0.15 MG, 3 IN 1 D
     Route: 048
     Dates: start: 20180506, end: 20180613
  24. CYTARABINE. [Suspect]
     Active Substance: CYTARABINE
     Dosage: 20 MG/M2, 1 IN 1D
     Route: 042
     Dates: start: 20180526, end: 20180604
  25. VENETOCLAX. [Suspect]
     Active Substance: VENETOCLAX
     Dosage: GASTROSTOMY (400 MG,1 IN 1 D)
     Route: 050
     Dates: start: 20171130, end: 20171130
  26. ACETAMINOPHENE [Concomitant]
     Active Substance: ACETAMINOPHEN
     Indication: PYREXIA
  27. ACETAMINOPHENE [Concomitant]
     Active Substance: ACETAMINOPHEN
     Indication: TRANSFUSION
  28. VITAMIN D [ERGOCALCIFEROL] [Concomitant]
     Active Substance: ERGOCALCIFEROL
     Indication: SUPPLEMENTATION THERAPY
     Dosage: 7000 UNIT, 1 IN 1 WK
     Route: 048
     Dates: start: 20140115
  29. DEXTROSE 5% + NACL0.9% [Concomitant]
     Indication: PROPHYLAXIS
     Dosage: UNK
     Route: 042
     Dates: start: 20171128, end: 20171202
  30. PENTAMIDINE [Concomitant]
     Active Substance: PENTAMIDINE
     Indication: INFECTION PROPHYLAXIS
     Dosage: 300 MG, 1 IN 1 MONTH
     Route: 042
     Dates: start: 20171115
  31. DIPHENHYDRAMINE [DIPHENHYDRAMINE HYDROCHLORIDE] [Concomitant]
     Indication: PROPHYLAXIS
  32. BENADRYL [Concomitant]
     Active Substance: DIPHENHYDRAMINE HYDROCHLORIDE
     Indication: TRANSFUSION
     Dosage: PRN BEFORE TRANSFUSION (50 MG, AS REQUIRED)
     Route: 042
     Dates: start: 20171201
  33. ALLOPURINOL. [Concomitant]
     Active Substance: ALLOPURINOL
     Dosage: UNK
     Route: 042
     Dates: start: 20180104, end: 20180108
  34. VENETOCLAX. [Suspect]
     Active Substance: VENETOCLAX
     Dosage: GASTROSTOMY (800 MG,1 IN 1 D)
     Route: 050
     Dates: start: 20171201, end: 20180103
  35. VENETOCLAX. [Suspect]
     Active Substance: VENETOCLAX
     Dosage: GASTROSTOMY (400 MG,1 IN 1 D)
     Route: 050
     Dates: start: 20180104, end: 20180412
  36. NYSTATIN. [Concomitant]
     Active Substance: NYSTATIN
     Indication: MUCOSAL INFLAMMATION
     Dosage: 400000 UNIT, 4 IN 1 DAY
     Route: 048
     Dates: start: 20170715
  37. ACETAMINOPHENE [Concomitant]
     Active Substance: ACETAMINOPHEN
     Indication: HEADACHE
     Dosage: 650 MG, AS REQUIRED, Q4H PRN
     Route: 048
     Dates: start: 20180105
  38. DIPHENHYDRAMINE [DIPHENHYDRAMINE HYDROCHLORIDE] [Concomitant]
     Indication: PROPHYLAXIS
     Dosage: PRN, ONCE PRE-TRANSFUSION (50 MG, AS REQUIRED)
     Route: 042
     Dates: start: 20180105
  39. ZOMETA [Concomitant]
     Active Substance: ZOLEDRONIC ACID
     Indication: OSTEOPOROSIS
     Dosage: 1.4 MG, 1 IN 1M
     Dates: start: 20160928, end: 20180615
  40. CLONIDINE. [Concomitant]
     Active Substance: CLONIDINE
     Dosage: UNK
     Dates: start: 20190613
  41. VENETOCLAX. [Suspect]
     Active Substance: VENETOCLAX
     Indication: NEOPLASM MALIGNANT
     Dosage: GASTROSTOMY (200 MG,1 IN 1 D)
     Route: 050
     Dates: start: 20171129, end: 20171129
  42. ACETAMINOPHENE [Concomitant]
     Active Substance: ACETAMINOPHEN
     Indication: INFLUENZA LIKE ILLNESS
     Dosage: 650 MG, AS REQUIRED, Q4H PRN
     Route: 048
     Dates: start: 20171129
  43. DOCUSATE SODIUM. [Concomitant]
     Active Substance: DOCUSATE SODIUM
     Indication: PROPHYLAXIS
     Dosage: 200 MG, 1 IN 1 D
     Route: 048
     Dates: start: 20180312
  44. NABILONE [Concomitant]
     Active Substance: NABILONE
     Indication: PAIN
     Dosage: 1 MG, AS NEEDED
     Route: 048
     Dates: start: 20180421
  45. CLONIDINE. [Concomitant]
     Active Substance: CLONIDINE
     Indication: PROPHYLAXIS
     Dosage: 0.15 MG, 3 IN 1D
     Route: 048
     Dates: start: 20180504, end: 20180506

REACTIONS (2)
  - Bacteraemia [Recovered/Resolved]
  - Necrotising fasciitis [Recovered/Resolved]

NARRATIVE: CASE EVENT DATE: 20180602
